APPROVED DRUG PRODUCT: TEGISON
Active Ingredient: ETRETINATE
Strength: 25MG
Dosage Form/Route: CAPSULE;ORAL
Application: N019369 | Product #002
Applicant: HOFFMANN LA ROCHE INC
Approved: Sep 30, 1986 | RLD: No | RS: No | Type: DISCN